FAERS Safety Report 26040216 (Version 1)
Quarter: 2025Q4

REPORT INFORMATION
  Report Type: Report from Study
  Country: RU (occurrence: RU)
  Receive Date: 20251113
  Receipt Date: 20251113
  Transmission Date: 20260119
  Serious: Yes (Hospitalization, Other)
  Sender: RANBAXY
  Company Number: RU-SUN PHARMACEUTICAL INDUSTRIES LTD-2025R1-536319

PATIENT
  Sex: Female
  Weight: 110 kg

DRUGS (3)
  1. SILDENAFIL [Suspect]
     Active Substance: SILDENAFIL
     Indication: Pulmonary hypertension
     Dosage: 20 MILLIGRAM, BID
     Route: 065
  2. FLUTICASONE FUROATE\UMECLIDINIUM BROMIDE\VILANTEROL TRIFENATATE [Suspect]
     Active Substance: FLUTICASONE FUROATE\UMECLIDINIUM BROMIDE\VILANTEROL TRIFENATATE
     Indication: Asthma
     Dosage: 22+55+184 MCG ONCE A DAY
  3. METHYLPREDNISOLONE [Suspect]
     Active Substance: METHYLPREDNISOLONE
     Indication: Hypersensitivity pneumonitis
     Dosage: 4 MILLIGRAM, 2 TABLETS ONCE A DAY IN THE MORNING AFTER MEALS
     Route: 065

REACTIONS (2)
  - Condition aggravated [Unknown]
  - Obstructive sleep apnoea syndrome [Recovering/Resolving]
